FAERS Safety Report 5205818-3 (Version None)
Quarter: 2007Q1

REPORT INFORMATION
  Report Type: 
  Country: None (occurrence: None)
  Receive Date: 20070105
  Receipt Date: 20070105
  Transmission Date: 20070707
  Serious: Yes (Life-Threatening, Hospitalization)
  Sender: FDA-Public Use
  Company Number: None

PATIENT
  Age: 51 Year
  Sex: Female
  Weight: 102.6 kg

DRUGS (4)
  1. MIRENA   (MERINA)    52MG    BERLEX [Suspect]
     Indication: DYSMENORRHOEA
     Dosage: 1 INTRAUTERINE DEVICE  Q 5 YEARS  INTRA-UTERI
     Route: 015
     Dates: start: 20060801, end: 20061227
  2. MIRENA   (MERINA)    52MG    BERLEX [Suspect]
     Indication: MENORRHAGIA
     Dosage: 1 INTRAUTERINE DEVICE  Q 5 YEARS  INTRA-UTERI
     Route: 015
     Dates: start: 20060801, end: 20061227
  3. AVIANE-21 [Suspect]
     Indication: DYSMENORRHOEA
     Dosage: 1 TABLET DAILY PO
     Route: 048
     Dates: start: 20061101, end: 20061227
  4. AVIANE-21 [Suspect]
     Indication: MENORRHAGIA
     Dosage: 1 TABLET DAILY PO
     Route: 048
     Dates: start: 20061101, end: 20061227

REACTIONS (1)
  - PULMONARY EMBOLISM [None]
